FAERS Safety Report 18189251 (Version 1)
Quarter: 2020Q3

REPORT INFORMATION
  Report Type: Spontaneous
  Country: DE (occurrence: DE)
  Receive Date: 20200824
  Receipt Date: 20200824
  Transmission Date: 20201103
  Serious: Yes (Other)
  Sender: FDA-Public Use
  Company Number: DE-ELI_LILLY_AND_COMPANY-DE202008006327

PATIENT
  Age: 0 Day
  Sex: Female
  Weight: 2.51 kg

DRUGS (16)
  1. PREDNISOLONE. [Suspect]
     Active Substance: PREDNISOLONE
     Indication: SARCOIDOSIS
     Dosage: 7 MG, DAILY AND CHRONIC POLYARTHRITIS
     Route: 064
     Dates: start: 20190703, end: 20191008
  2. PROTAPHANE [Suspect]
     Active Substance: INSULIN HUMAN
     Indication: TYPE 3 DIABETES MELLITUS
     Dosage: 10 INTERNATIONAL UNIT, DAILY
     Route: 064
  3. INFLUSPLIT TETRA [Concomitant]
     Active Substance: INFLUENZA VIRUS VACCINE
     Indication: IMMUNISATION
     Dosage: UNK, UNKNOWN
     Route: 064
     Dates: start: 20191125, end: 20191125
  4. PREDNISOLONE. [Suspect]
     Active Substance: PREDNISOLONE
     Indication: SARCOIDOSIS
     Dosage: 7 MG, DAILY AND CHRONIC POLYARTHRITIS
     Route: 064
     Dates: start: 20190703, end: 20191008
  5. PROTAPHANE [Suspect]
     Active Substance: INSULIN HUMAN
     Indication: TYPE 3 DIABETES MELLITUS
     Dosage: 10 INTERNATIONAL UNIT, DAILY
     Route: 064
  6. INFLUSPLIT TETRA [Concomitant]
     Active Substance: INFLUENZA VIRUS VACCINE
     Indication: IMMUNISATION
     Dosage: UNK, UNKNOWN
     Route: 064
     Dates: start: 20191125, end: 20191125
  7. CYTOTEC [Concomitant]
     Active Substance: MISOPROSTOL
     Indication: LABOUR INDUCTION
     Dosage: 400 UG, DAILY (2X200)
     Route: 064
     Dates: start: 20200324, end: 20200324
  8. ASPIRIN. [Concomitant]
     Active Substance: ASPIRIN
     Indication: PROPHYLAXIS
     Dosage: 150 MG, DAILY
     Route: 064
  9. HUMALOG [Suspect]
     Active Substance: INSULIN LISPRO
     Indication: TYPE 3 DIABETES MELLITUS
     Dosage: 4 INTERNATIONAL UNIT, BID
     Route: 064
  10. LODOTRA [Suspect]
     Active Substance: PREDNISONE
     Indication: SARCOIDOSIS
     Dosage: 7 MG, DAILY AND CHRONIC POLYARTHRITIS
     Route: 064
     Dates: start: 20191009, end: 20200324
  11. L?THYROX [Concomitant]
     Active Substance: LEVOTHYROXINE SODIUM
     Indication: THYROID HORMONE REPLACEMENT THERAPY
     Dosage: 125 UG, DAILY
     Route: 064
     Dates: start: 20190703, end: 20200324
  12. HUMALOG [Suspect]
     Active Substance: INSULIN LISPRO
     Indication: TYPE 3 DIABETES MELLITUS
     Dosage: 4 INTERNATIONAL UNIT, BID
     Route: 064
  13. LODOTRA [Suspect]
     Active Substance: PREDNISONE
     Indication: SARCOIDOSIS
     Dosage: 7 MG, DAILY AND CHRONIC POLYARTHRITIS
     Route: 064
     Dates: start: 20191009, end: 20200324
  14. ASPIRIN. [Concomitant]
     Active Substance: ASPIRIN
     Indication: PROPHYLAXIS
     Dosage: 150 MG, DAILY
     Route: 064
  15. L?THYROX [Concomitant]
     Active Substance: LEVOTHYROXINE SODIUM
     Indication: THYROID HORMONE REPLACEMENT THERAPY
     Dosage: 125 UG, DAILY
     Route: 064
     Dates: start: 20190703, end: 20200324
  16. CYTOTEC [Concomitant]
     Active Substance: MISOPROSTOL
     Indication: LABOUR INDUCTION
     Dosage: 400 UG, DAILY (2X200)
     Route: 064
     Dates: start: 20200324, end: 20200324

REACTIONS (2)
  - Hypoglycaemia neonatal [Recovered/Resolved]
  - Foetal exposure during pregnancy [Unknown]

NARRATIVE: CASE EVENT DATE: 20200324
